FAERS Safety Report 7686121-9 (Version None)
Quarter: 2011Q3

REPORT INFORMATION
  Report Type: 
  Country: None (occurrence: None)
  Receive Date: 20110816
  Receipt Date: 20110809
  Transmission Date: 20111222
  Serious: Yes (Other)
  Sender: FDA-Public Use
  Company Number: PHHY2010US07954

PATIENT
  Sex: Female

DRUGS (15)
  1. EXTAVIA [Suspect]
     Dosage: 0.125 MG, QOD
     Route: 058
     Dates: start: 20100224
  2. TYLENOL-500 [Concomitant]
     Dosage: UNK UKN, UNK
  3. EXTAVIA [Suspect]
     Indication: MULTIPLE SCLEROSIS
     Dosage: 0.25 MG (1 ML), QOD
     Route: 058
     Dates: start: 20100206
  4. EXTAVIA [Suspect]
     Dosage: 0.25 MG (1 ML), QOD
     Route: 058
     Dates: start: 20100206
  5. EXTAVIA [Suspect]
     Dosage: 0.3 MG, QOD
     Route: 058
  6. MULTI-VITAMINS [Concomitant]
     Dosage: UNK UKN, UNK
  7. KLOR-CON [Concomitant]
     Dosage: 10 MG, UNK
  8. HYDROCHLOROTHIAZIDE [Concomitant]
     Dosage: 12.5 MG, UNK
  9. LEVODOPA [Concomitant]
     Dosage: UNK UKN, UNK
  10. POTASSIUM [Concomitant]
     Dosage: 10 MEQ, TID
  11. METHYLDOPA [Concomitant]
     Indication: HYPERTENSION
     Dosage: 250 MG, BID
  12. HYDROCHLORIC ACID [Concomitant]
     Dosage: 25 MG, UNK
  13. CALCIUM WITH VITAMIN D [Concomitant]
     Dosage: UNK UKN, UNK
  14. HYDROCORTISONE [Concomitant]
     Dosage: UNK UKN, UNK
  15. EXTAVIA [Suspect]
     Dosage: 0.25 MG (1 ML), QOD
     Route: 058
     Dates: start: 20100101

REACTIONS (22)
  - DEPRESSION [None]
  - SOCIAL AVOIDANT BEHAVIOUR [None]
  - INFLUENZA LIKE ILLNESS [None]
  - FEELING ABNORMAL [None]
  - INJECTION SITE REACTION [None]
  - SPINAL CORD DISORDER [None]
  - SENSATION OF HEAVINESS [None]
  - HYPOAESTHESIA [None]
  - IRRITABILITY [None]
  - INJECTION SITE ERYTHEMA [None]
  - INJECTION SITE HAEMATOMA [None]
  - INJECTION SITE SWELLING [None]
  - HEADACHE [None]
  - CARPAL TUNNEL SYNDROME [None]
  - DECREASED INTEREST [None]
  - PANIC ATTACK [None]
  - CRYING [None]
  - PARAESTHESIA [None]
  - FATIGUE [None]
  - SOMNOLENCE [None]
  - AGITATION [None]
  - INJECTION SITE PRURITUS [None]
